FAERS Safety Report 4406325-8 (Version None)
Quarter: 2004Q3

REPORT INFORMATION
  Report Type: 
  Country: None (occurrence: None)
  Receive Date: 20040723
  Receipt Date: 20030620
  Transmission Date: 20050211
  Serious: No
  Sender: FDA-Public Use
  Company Number: US-GLAXOSMITHKLINE-A0413354A

PATIENT
  Age: 52 Year
  Sex: Female
  Weight: 106.8 kg

DRUGS (3)
  1. AVANDIA [Suspect]
     Dosage: 8MG PER DAY
     Route: 048
     Dates: start: 20021001
  2. PRINIVIL [Concomitant]
  3. PRAVACHOL [Concomitant]

REACTIONS (1)
  - WEIGHT INCREASED [None]
